FAERS Safety Report 5280501-7 (Version None)
Quarter: 2007Q1

REPORT INFORMATION
  Report Type: 
  Country: None (occurrence: None)
  Receive Date: 20061215
  Receipt Date: 20060331
  Transmission Date: 20070707
  Serious: Yes (Hospitalization, Other)
  Sender: FDA-Public Use
  Company Number: HQWYE679106APR06

PATIENT
  Age: 31 Year
  Sex: Male
  Weight: 99.88 kg

DRUGS (3)
  1. EFFEXOR XR [Suspect]
     Dosage: 150 MG - FREQUENCY UNSPECIFIED, ORAL
     Route: 048
     Dates: start: 20041214, end: 20060224
  2. XANAX [Concomitant]
  3. ALLEGRA [Concomitant]

REACTIONS (1)
  - ATRIAL FIBRILLATION [None]
